FAERS Safety Report 5197111-2 (Version None)
Quarter: 2006Q4

REPORT INFORMATION
  Report Type: 
  Country: None (occurrence: None)
  Receive Date: 20061227
  Receipt Date: 20061214
  Transmission Date: 20070319
  Serious: Yes (Life-Threatening)
  Sender: FDA-Public Use
  Company Number: 2006154164

PATIENT
  Age: 18 Year
  Sex: Male

DRUGS (2)
  1. LINEZOLID [Suspect]
     Indication: INFECTION
     Dosage: 600 MG (600 MG, EVERY DAY), ORAL
     Route: 048
     Dates: start: 20060101, end: 20060101
  2. LINEZOLID [Suspect]
     Indication: SEPSIS
     Dosage: 600 MG (600 MG, EVERY DAY), ORAL
     Route: 048
     Dates: start: 20060101, end: 20060101

REACTIONS (4)
  - DELIRIUM [None]
  - EPILEPSY [None]
  - SEPSIS [None]
  - SEROTONIN SYNDROME [None]
